FAERS Safety Report 10303981 (Version 3)
Quarter: 2014Q3

REPORT INFORMATION
  Report Type: Spontaneous
  Country: AR (occurrence: AR)
  Receive Date: 20140714
  Receipt Date: 20140805
  Transmission Date: 20150326
  Serious: Yes (Life-Threatening, Other)
  Sender: FDA-Public Use
  Company Number: PHHY2014AR086319

PATIENT
  Age: 68 Year
  Sex: Female

DRUGS (2)
  1. TEGRETOL [Suspect]
     Active Substance: CARBAMAZEPINE
     Indication: CONVULSION
     Dosage: 200 MG, TID
     Dates: start: 1978, end: 20140425
  2. TEGRETOL [Suspect]
     Active Substance: CARBAMAZEPINE
     Indication: EPILEPSY
     Dosage: 200 MG, TID
     Dates: start: 20140428

REACTIONS (9)
  - Ankle fracture [Recovered/Resolved]
  - Joint swelling [Recovering/Resolving]
  - Epilepsy [Recovering/Resolving]
  - Terminal state [Not Recovered/Not Resolved]
  - Screaming [Not Recovered/Not Resolved]
  - Depression [Unknown]
  - Convulsion [Not Recovered/Not Resolved]
  - Fall [Not Recovered/Not Resolved]
  - Limb discomfort [Recovered/Resolved]

NARRATIVE: CASE EVENT DATE: 20140425
